FAERS Safety Report 8159080-2 (Version None)
Quarter: 2012Q1

REPORT INFORMATION
  Report Type: 
  Country: None (occurrence: None)
  Receive Date: 20120223
  Receipt Date: 20120220
  Transmission Date: 20120608
  Serious: Yes (Other)
  Sender: FDA-Public Use
  Company Number: US-PFIZER INC-2011317487

PATIENT
  Sex: Male
  Weight: 40 kg

DRUGS (7)
  1. HYDROCHLOROTHIAZIDE [Concomitant]
     Dosage: UNK
  2. CHANTIX [Suspect]
     Dosage: UNK
     Dates: start: 20070101, end: 20070101
  3. PERCODAN-DEMI [Concomitant]
     Indication: PAIN
     Dosage: UNK, 4X/DAY
  4. CHANTIX [Suspect]
     Dosage: UNK
     Dates: start: 20111227
  5. CREON [Concomitant]
     Indication: DYSPEPSIA
     Dosage: 24000 IU, UNK
  6. LORAZEPAM [Concomitant]
     Indication: SLEEP DISORDER
     Dosage: 25 MG, DAILY
  7. CHANTIX [Suspect]
     Indication: SMOKING CESSATION THERAPY
     Dosage: 0.5 MG, 1X/DAY
     Route: 048
     Dates: start: 20070101

REACTIONS (6)
  - INSOMNIA [None]
  - ABNORMAL DREAMS [None]
  - DEPRESSION [None]
  - SUICIDAL IDEATION [None]
  - ANTISOCIAL BEHAVIOUR [None]
  - CONSTIPATION [None]
